FAERS Safety Report 4598604-9 (Version None)
Quarter: 2005Q1

REPORT INFORMATION
  Report Type: 
  Country: None (occurrence: None)
  Receive Date: 20050304
  Receipt Date: 20050223
  Transmission Date: 20050727
  Serious: Yes (Hospitalization)
  Sender: FDA-Public Use
  Company Number: JP-ROCHE-396391

PATIENT
  Age: 62 Year
  Sex: Female

DRUGS (5)
  1. PANALDINE [Suspect]
     Indication: CEREBRAL INFARCTION
     Route: 048
     Dates: start: 20050202, end: 20050214
  2. GASTER [Suspect]
     Indication: GASTRITIS
     Route: 048
     Dates: start: 20050129
  3. MYONAL [Concomitant]
     Indication: TENSION HEADACHE
     Route: 048
     Dates: start: 20050209, end: 20050214
  4. DEPAS [Concomitant]
     Indication: TENSION HEADACHE
     Route: 048
     Dates: start: 20050209, end: 20050214
  5. PL [Concomitant]
     Indication: UPPER RESPIRATORY TRACT INFECTION
     Route: 048
     Dates: start: 20050212, end: 20050214

REACTIONS (5)
  - ERYTHEMA [None]
  - HEPATIC FUNCTION ABNORMAL [None]
  - LEUKOPENIA [None]
  - PYREXIA [None]
  - THROMBOCYTOPENIA [None]
